FAERS Safety Report 4391160-X (Version None)
Quarter: 2004Q2

REPORT INFORMATION
  Report Type: 
  Country: None (occurrence: None)
  Receive Date: 20040621
  Receipt Date: 20031113
  Transmission Date: 20050107
  Serious: Yes (Hospitalization, Other)
  Sender: FDA-Public Use
  Company Number: USA-2003-0010068

PATIENT
  Age: 39 Year
  Sex: Female

DRUGS (3)
  1. OXYCONTIN [Suspect]
     Dosage: SEE TEXT
  2. PERCOCET [Suspect]
  3. AMBIEN [Suspect]

REACTIONS (10)
  - ACCIDENTAL OVERDOSE [None]
  - ANTISOCIAL BEHAVIOUR [None]
  - DRUG ABUSER [None]
  - DRUG DEPENDENCE [None]
  - DYSARTHRIA [None]
  - GAIT DISTURBANCE [None]
  - ILL-DEFINED DISORDER [None]
  - MYDRIASIS [None]
  - RHINORRHOEA [None]
  - TACHYCARDIA [None]
